FAERS Safety Report 4662693-3 (Version None)
Quarter: 2005Q2

REPORT INFORMATION
  Report Type: 
  Country: None (occurrence: None)
  Receive Date: 20050516
  Receipt Date: 20050509
  Transmission Date: 20051028
  Serious: Yes (Hospitalization)
  Sender: FDA-Public Use
  Company Number: US-GLAXOSMITHKLINE-A0557747A

PATIENT
  Sex: Male

DRUGS (9)
  1. AVODART [Suspect]
     Indication: BENIGN PROSTATIC HYPERPLASIA
     Dosage: .5MG PER DAY
     Route: 048
     Dates: start: 20040101
  2. TENORMIN [Concomitant]
  3. NEXIUM [Concomitant]
  4. CLONAZEPAM [Concomitant]
  5. LOTREL [Concomitant]
  6. ASPIRIN [Concomitant]
  7. ICAPS [Concomitant]
  8. SYNTHROID [Concomitant]
  9. LOVASTATIN [Concomitant]

REACTIONS (3)
  - ANAEMIA [None]
  - BACK DISORDER [None]
  - CHOLELITHIASIS [None]
